FAERS Safety Report 21991419 (Version 1)
Quarter: 2023Q1

REPORT INFORMATION
  Report Type: Spontaneous
  Country: US (occurrence: US)
  Receive Date: 20230214
  Receipt Date: 20230214
  Transmission Date: 20230417
  Serious: No
  Sender: FDA-Public Use
  Company Number: US-SA-SAC20230209001879

PATIENT
  Age: 43 Year
  Sex: Male

DRUGS (2)
  1. ELOCTATE [Suspect]
     Active Substance: EFMOROCTOCOG ALFA
     Dosage: 4300 IU (3870 TO 4730 UNITS)
     Route: 065
  2. ELOCTATE [Suspect]
     Active Substance: EFMOROCTOCOG ALFA
     Dosage: 4300 IU (3870 TO 4730 UNITS)
     Route: 065

REACTIONS (2)
  - Back injury [Unknown]
  - Pain [Unknown]

NARRATIVE: CASE EVENT DATE: 20230115
